FAERS Safety Report 8257112-4 (Version None)
Quarter: 2012Q2

REPORT INFORMATION
  Report Type: 
  Country: None (occurrence: None)
  Receive Date: 20120403
  Receipt Date: 20120330
  Transmission Date: 20120825
  Serious: No
  Sender: FDA-Public Use
  Company Number: US-PFIZER INC-2012081852

PATIENT
  Sex: Female

DRUGS (2)
  1. ADVIL PM [Suspect]
     Indication: SLEEP DISORDER
  2. ADVIL PM [Suspect]
     Indication: HEADACHE
     Dosage: 200 MG, DAILY
     Dates: start: 20120326

REACTIONS (1)
  - DRUG INEFFECTIVE [None]
